FAERS Safety Report 4950320-7 (Version None)
Quarter: 2006Q1

REPORT INFORMATION
  Report Type: 
  Country: None (occurrence: None)
  Receive Date: 20060322
  Receipt Date: 20060313
  Transmission Date: 20060701
  Serious: Yes (Life-Threatening, Hospitalization)
  Sender: FDA-Public Use
  Company Number: GB-JNJFOC-20060304046

PATIENT
  Sex: Male

DRUGS (3)
  1. REMICADE [Suspect]
     Indication: ANKYLOSING SPONDYLITIS
     Route: 042
  2. ARCOXIA [Concomitant]
     Indication: ANKYLOSING SPONDYLITIS
     Route: 048
  3. ACETAMINOPHEN [Concomitant]
     Indication: ANKYLOSING SPONDYLITIS
     Dosage: AS REQUIRED
     Route: 048

REACTIONS (2)
  - CONGESTIVE CARDIOMYOPATHY [None]
  - PNEUMONIA [None]
